FAERS Safety Report 11103947 (Version 1)
Quarter: 2015Q2

REPORT INFORMATION
  Report Type: Report from Study
  Country: GB (occurrence: GB)
  Receive Date: 20150511
  Receipt Date: 20150511
  Transmission Date: 20150821
  Serious: Yes (Death, Hospitalization, Other)
  Sender: FDA-Public Use
  Company Number: GB-GLAXOSMITHKLINE-GB2015GSK062595

PATIENT
  Age: 22 Year
  Sex: Male

DRUGS (1)
  1. ZANAMIVIR [Suspect]
     Active Substance: ZANAMIVIR
     Indication: INFLUENZA
     Dosage: UNK
     Route: 042
     Dates: start: 20091013, end: 20091027

REACTIONS (3)
  - Death [Fatal]
  - Bronchopleural fistula [Fatal]
  - Hepatic failure [Fatal]

NARRATIVE: CASE EVENT DATE: 20091017
